FAERS Safety Report 6749868-4 (Version None)
Quarter: 2010Q2

REPORT INFORMATION
  Report Type: 
  Country: None (occurrence: None)
  Receive Date: 20100601
  Receipt Date: 20100518
  Transmission Date: 20101027
  Serious: Yes (Other)
  Sender: FDA-Public Use
  Company Number: BE-ELI_LILLY_AND_COMPANY-BE201002006251

PATIENT
  Sex: Female
  Weight: 52 kg

DRUGS (8)
  1. FORTEO [Suspect]
     Indication: OSTEOPOROSIS
     Dosage: 20 MG, DAILY (1/D)
     Route: 058
     Dates: start: 20091121, end: 20100101
  2. FORTEO [Suspect]
     Dosage: 20 MG, DAILY (1/D)
     Route: 058
     Dates: start: 20100101, end: 20100109
  3. EMCONCOR /00802601/ [Concomitant]
     Dosage: 10 MG, DAILY (1/D)
     Route: 065
     Dates: start: 20040101
  4. ASAFLOW [Concomitant]
     Dosage: 80 (UNITS UNSPECIFIED), 2/D
     Route: 065
     Dates: start: 20070101
  5. BELSAR /01635402/ [Concomitant]
     Dosage: 20 (UNITS UNSPECIFIED), DAILY (1/D)
     Route: 065
     Dates: start: 20070101
  6. ZYLORIC [Concomitant]
     Dosage: 300 (UNITS UNSPECIFIED), DAILY (1/D)
     Route: 065
     Dates: start: 20090409
  7. STEOVIT D3 [Concomitant]
     Dosage: UNK, 2/D
     Route: 065
  8. D-CURE [Concomitant]
     Dosage: ONCE EVERY TWO WEEKS, OTHER
     Route: 065

REACTIONS (2)
  - MUSCLE SPASMS [None]
  - RENAL FAILURE [None]
